FAERS Safety Report 23757010 (Version 1)
Quarter: 2024Q2

REPORT INFORMATION
  Report Type: Spontaneous
  Country: US (occurrence: US)
  Receive Date: 20240418
  Receipt Date: 20240418
  Transmission Date: 20240716
  Serious: No
  Sender: FDA-Public Use
  Company Number: US-PFIZER INC-PV202400050328

PATIENT
  Age: 52 Year
  Sex: Female

DRUGS (2)
  1. IBRANCE [Suspect]
     Active Substance: PALBOCICLIB
  2. LETROZOLE [Concomitant]
     Active Substance: LETROZOLE

REACTIONS (3)
  - Asthenia [Unknown]
  - Nausea [Unknown]
  - Poor quality sleep [Unknown]
